FAERS Safety Report 6165633-3 (Version None)
Quarter: 2009Q2

REPORT INFORMATION
  Report Type: 
  Country: None (occurrence: None)
  Receive Date: 20090423
  Receipt Date: 20090408
  Transmission Date: 20091009
  Serious: Yes (Death)
  Sender: FDA-Public Use
  Company Number: GB-BAUSCH-2009BL001583

PATIENT
  Age: 79 Year
  Sex: Male
  Weight: 68 kg

DRUGS (6)
  1. PREDNISOLONE [Suspect]
     Indication: DRUG USE FOR UNKNOWN INDICATION
  2. ACETYLCYSTEINE [Suspect]
     Indication: INTERSTITIAL LUNG DISEASE
     Route: 048
     Dates: start: 20081114, end: 20081226
  3. ALENDRONATE SODIUM [Suspect]
     Indication: DRUG USE FOR UNKNOWN INDICATION
     Route: 048
     Dates: start: 20081114
  4. AZATHIOPRINE SODIUM [Suspect]
     Indication: INTERSTITIAL LUNG DISEASE
     Route: 048
     Dates: start: 20081114, end: 20081226
  5. OMEPRAZOLE [Suspect]
     Indication: DRUG USE FOR UNKNOWN INDICATION
     Route: 048
     Dates: start: 20081114
  6. WARFARIN SODIUM [Concomitant]
     Indication: MITRAL VALVE REPLACEMENT

REACTIONS (2)
  - SEPSIS [None]
  - TOXIC EPIDERMAL NECROLYSIS [None]
